FAERS Safety Report 9521853 (Version 1)
Quarter: 2013Q3

REPORT INFORMATION
  Report Type: Spontaneous
  Country: FR (occurrence: FR)
  Receive Date: 20130913
  Receipt Date: 20130913
  Transmission Date: 20140515
  Serious: Yes (Life-Threatening, Hospitalization)
  Sender: FDA-Public Use
  Company Number: FR-MERCK-1309FRA002102

PATIENT
  Age: 37 Year
  Sex: Female

DRUGS (4)
  1. VARNOLINE [Suspect]
     Dosage: 1 DF, QD
     Route: 048
     Dates: start: 2009, end: 20120316
  2. IXPRIM (ACETAMINOPHEN (+) TRAMADOL HYDROCHLORIDE) [Concomitant]
  3. TETRAZEPAM [Concomitant]
  4. KESTINLYO [Concomitant]

REACTIONS (2)
  - Ischaemic stroke [Recovered/Resolved]
  - Diplopia [Recovered/Resolved]
